FAERS Safety Report 7220645-3 (Version None)
Quarter: 2011Q1

REPORT INFORMATION
  Report Type: 
  Country: None (occurrence: None)
  Receive Date: 20110111
  Receipt Date: 20110104
  Transmission Date: 20110831
  Serious: Yes (Other)
  Sender: FDA-Public Use
  Company Number: US-US-EMD SERONO, INC.-7034685

PATIENT
  Sex: Female

DRUGS (4)
  1. FENTORA LOZENGES [Concomitant]
     Indication: PAIN
  2. UNSPECIFIED MEDICATIONS [Concomitant]
     Indication: PAIN
  3. OXYMORPHONE TIME RELEASE [Concomitant]
     Indication: PAIN
  4. REBIF [Suspect]
     Indication: MULTIPLE SCLEROSIS
     Dates: start: 20090415, end: 20091202

REACTIONS (2)
  - BACTERIAL DISEASE CARRIER [None]
  - CROHN'S DISEASE [None]
